FAERS Safety Report 23165697 (Version 1)
Quarter: 2023Q4

REPORT INFORMATION
  Report Type: Spontaneous
  Country: FR (occurrence: FR)
  Receive Date: 20231109
  Receipt Date: 20231109
  Transmission Date: 20240109
  Serious: Yes (Death)
  Sender: FDA-Public Use
  Company Number: FR-ORPHANEU-2023007394

PATIENT
  Age: 11 Month
  Sex: Male

DRUGS (1)
  1. URSODIOL [Suspect]
     Active Substance: URSODIOL
     Indication: Hepatic steatosis
     Dosage: UNK
     Route: 065

REACTIONS (2)
  - Weight increased [Fatal]
  - Off label use [Recovered/Resolved]
